FAERS Safety Report 20078118 (Version 4)
Quarter: 2022Q1

REPORT INFORMATION
  Report Type: Spontaneous
  Country: US (occurrence: US)
  Receive Date: 20211117
  Receipt Date: 20220204
  Transmission Date: 20220424
  Serious: Yes (Hospitalization)
  Sender: FDA-Public Use
  Company Number: US-BIOVITRUM-2021US10678

PATIENT
  Age: 0 Year
  Sex: Female

DRUGS (2)
  1. SYNAGIS [Suspect]
     Active Substance: PALIVIZUMAB
     Indication: Heart disease congenital
     Route: 030
     Dates: start: 20211027
  2. SYNAGIS [Suspect]
     Active Substance: PALIVIZUMAB
     Indication: Hypoplastic left heart syndrome
     Route: 030
     Dates: start: 202110

REACTIONS (1)
  - Cardiac operation [Recovered/Resolved]

NARRATIVE: CASE EVENT DATE: 20220103
